FAERS Safety Report 9437206 (Version 1)
Quarter: 2013Q3

REPORT INFORMATION
  Report Type: Spontaneous
  Country: JP (occurrence: JP)
  Receive Date: 20130802
  Receipt Date: 20130802
  Transmission Date: 20140515
  Serious: Yes (Hospitalization)
  Sender: FDA-Public Use
  Company Number: PHHY2013JP082205

PATIENT
  Sex: Male

DRUGS (1)
  1. LAMISIL [Suspect]
     Dosage: UNK UKN, UNK
     Route: 048
     Dates: start: 201305

REACTIONS (6)
  - Bone pain [Unknown]
  - Hyperthermia [Unknown]
  - Swelling [Unknown]
  - Pyrexia [Unknown]
  - Pruritus [Not Recovered/Not Resolved]
  - Nail disorder [Unknown]
